FAERS Safety Report 5248036-5 (Version None)
Quarter: 2007Q1

REPORT INFORMATION
  Report Type: 
  Country: None (occurrence: None)
  Receive Date: 20070227
  Receipt Date: 20070222
  Transmission Date: 20070707
  Serious: Yes (Death)
  Sender: FDA-Public Use
  Company Number: US-SANOFI-SYNTHELABO-F03200700047

PATIENT
  Sex: Female
  Weight: 73 kg

DRUGS (11)
  1. ELOXATIN [Suspect]
     Indication: NON-SMALL CELL LUNG CANCER
     Route: 042
     Dates: start: 20070206, end: 20070206
  2. FOLIC ACID [Concomitant]
     Route: 048
     Dates: start: 20070108, end: 20070213
  3. LYRICA [Concomitant]
     Route: 048
     Dates: start: 20070131, end: 20070213
  4. DILAUDID [Concomitant]
     Dosage: 25 MG/HR CONTINUOUS INFUSION
     Route: 042
     Dates: start: 20070116, end: 20070213
  5. COUMADIN [Concomitant]
     Route: 048
     Dates: start: 20070131, end: 20070213
  6. COLACE [Concomitant]
     Route: 048
     Dates: start: 20070108, end: 20070213
  7. PHENERGAN [Concomitant]
     Route: 048
     Dates: start: 20070102, end: 20070213
  8. XANAX [Concomitant]
     Route: 048
     Dates: start: 20070108, end: 20070213
  9. ZOFRAN [Concomitant]
     Route: 048
     Dates: start: 20070108, end: 20070213
  10. AVASTIN [Suspect]
     Indication: NON-SMALL CELL LUNG CANCER
     Route: 042
     Dates: start: 20070115, end: 20070115
  11. ALIMTA [Suspect]
     Indication: NON-SMALL CELL LUNG CANCER
     Route: 042
     Dates: start: 20070206, end: 20070206

REACTIONS (2)
  - DEATH [None]
  - DISEASE PROGRESSION [None]
